FAERS Safety Report 4676563-8 (Version None)
Quarter: 2005Q2

REPORT INFORMATION
  Report Type: 
  Country: None (occurrence: None)
  Receive Date: 20050526
  Receipt Date: 20050526
  Transmission Date: 20051028
  Serious: No
  Sender: FDA-Public Use
  Company Number: None

PATIENT
  Sex: Male
  Weight: 84.5 kg

DRUGS (2)
  1. TEMODAR [Suspect]
     Dosage: 75 MG/M2 DAILY FOR 6 WEEKS
     Dates: start: 20050327
  2. RADIATION [Suspect]
     Dosage: ONE TREATMENT OF 2 GU DAO;U 5 DAYS A WEEK FOR A TOTAL OF 60 GY OVER 6 WEEKS

REACTIONS (6)
  - ASTHENIA [None]
  - BRAIN OEDEMA [None]
  - GLIOBLASTOMA [None]
  - GRAND MAL CONVULSION [None]
  - HYPOAESTHESIA [None]
  - VISUAL DISTURBANCE [None]
